FAERS Safety Report 6299132-5 (Version None)
Quarter: 2009Q3

REPORT INFORMATION
  Report Type: 
  Country: None (occurrence: None)
  Receive Date: 20090803
  Receipt Date: 20090721
  Transmission Date: 20100115
  Serious: Yes (Hospitalization)
  Sender: FDA-Public Use
  Company Number: 2009SP001905

PATIENT
  Age: 70 Year
  Sex: Male
  Weight: 90.7 kg

DRUGS (10)
  1. BROVANA [Suspect]
     Indication: CHRONIC OBSTRUCTIVE PULMONARY DISEASE
     Dosage: 15 UG/2ML; BID; INHALATION
     Route: 055
     Dates: start: 20080101
  2. XOPENEX [Suspect]
     Indication: ASTHMA
     Dosage: 1.25 MG/3ML; PRN; INHALATION
     Route: 055
     Dates: start: 20080101
  3. LASIX [Suspect]
     Indication: CARDIAC FAILURE CONGESTIVE
     Dosage: 40 MG; QD; ORAL, 20 MG; QOD; ORAL
     Route: 048
     Dates: end: 20090701
  4. LASIX [Suspect]
     Indication: CARDIAC FAILURE CONGESTIVE
     Dosage: 40 MG; QD; ORAL, 20 MG; QOD; ORAL
     Route: 048
     Dates: start: 20090701
  5. LISINOPRIL [Suspect]
     Indication: HYPERTENSION
  6. PULMICORT-100 [Concomitant]
  7. SPIRONOLACTONE [Concomitant]
  8. PROTONIX [Concomitant]
  9. SINGULAIR [Concomitant]
  10. PRILOSEC [Concomitant]

REACTIONS (6)
  - CHRONIC OBSTRUCTIVE PULMONARY DISEASE [None]
  - HEADACHE [None]
  - HYPOTENSION [None]
  - LOSS OF CONSCIOUSNESS [None]
  - PAIN [None]
  - PLEURAL EFFUSION [None]
